FAERS Safety Report 21577756 (Version 1)
Quarter: 2022Q4

REPORT INFORMATION
  Report Type: Spontaneous
  Country: MA (occurrence: GA)
  Receive Date: 20221110
  Receipt Date: 20221110
  Transmission Date: 20230113
  Serious: Yes (Hospitalization, Other)
  Sender: FDA-Public Use
  Company Number: MA-AMNEAL PHARMACEUTICALS-2022-AMRX-03273

PATIENT
  Age: 28 Year
  Sex: Male

DRUGS (6)
  1. LIDOCAINE [Suspect]
     Active Substance: LIDOCAINE
     Indication: Product used for unknown indication
     Route: 065
  2. DEXCHLORPHENIRAMINE [Concomitant]
     Active Substance: DEXCHLORPHENIRAMINE
  3. PANTOPRAZOLE [Concomitant]
     Active Substance: PANTOPRAZOLE
  4. TRAMADOL [Concomitant]
     Active Substance: TRAMADOL
  5. MICONAZOLE [Concomitant]
     Active Substance: MICONAZOLE
  6. FUSIDIC ACID [Concomitant]
     Active Substance: FUSIDIC ACID

REACTIONS (1)
  - Stevens-Johnson syndrome [Unknown]
